FAERS Safety Report 9115284 (Version 1)
Quarter: 2013Q1

REPORT INFORMATION
  Report Type: Report from Study
  Country: DK (occurrence: DK)
  Receive Date: 20130225
  Receipt Date: 20130225
  Transmission Date: 20140127
  Serious: Yes (Hospitalization)
  Sender: FDA-Public Use
  Company Number: PHHO2011DK08471

PATIENT
  Age: 73 Year
  Sex: Male
  Weight: 126 kg

DRUGS (12)
  1. BLINDED ALISKIREN [Suspect]
     Indication: CARDIAC FAILURE
     Dosage: CODE NOT BROKEN
     Route: 048
     Dates: start: 20101012, end: 20110308
  2. BLINDED ENALAPRIL [Suspect]
     Indication: CARDIAC FAILURE
     Dosage: CODE NOT BROKEN
     Route: 048
     Dates: start: 20101012, end: 20110308
  3. BLINDED NO TREATMENT RECEIVED [Suspect]
     Indication: CARDIAC FAILURE
     Dosage: CODE NOT BROKEN
     Route: 048
     Dates: start: 20101012, end: 20110308
  4. RAMIPRIL [Concomitant]
     Indication: CARDIAC FAILURE
     Dosage: 10 MG, QD
     Route: 048
     Dates: start: 20110308
  5. CENTYL K [Concomitant]
     Indication: CARDIAC FAILURE
     Dosage: 2.5 MG, QD
     Route: 048
     Dates: start: 20110424
  6. SELOZOK [Concomitant]
     Indication: CARDIAC FAILURE
     Dosage: 50 MG, BID
     Route: 048
     Dates: start: 20110407, end: 20110517
  7. SELOZOK [Concomitant]
     Dosage: UNK
     Dates: start: 20110518, end: 20121109
  8. SELOZOK [Concomitant]
     Dosage: UNK
     Dates: start: 20121112
  9. FURIX [Concomitant]
     Indication: CARDIAC FAILURE
     Dosage: 80 MG, TID
     Route: 048
     Dates: start: 20110428, end: 20110517
  10. FURIX [Concomitant]
     Dosage: 200 MG, QD
     Dates: start: 20121019, end: 20121113
  11. FURIX [Concomitant]
     Dosage: 160 MG, QD
     Dates: start: 20121113
  12. SPIRON [Concomitant]
     Indication: CARDIAC FAILURE
     Dosage: 25 MG, QD
     Route: 048
     Dates: start: 20110427

REACTIONS (4)
  - Cardiac failure [Recovered/Resolved]
  - Concomitant disease progression [Recovering/Resolving]
  - Chronic obstructive pulmonary disease [Recovered/Resolved]
  - Atrial fibrillation [Recovered/Resolved]
